FAERS Safety Report 17124335 (Version 14)
Quarter: 2021Q3

REPORT INFORMATION
  Report Type: Spontaneous
  Country: BR (occurrence: BR)
  Receive Date: 20191206
  Receipt Date: 20210707
  Transmission Date: 20211014
  Serious: Yes (Other)
  Sender: FDA-Public Use
  Company Number: BR-GLAXOSMITHKLINE-BR2019AMR195304

PATIENT
  Age: 41 Year
  Sex: Female

DRUGS (4)
  1. ATROVENT [Suspect]
     Active Substance: IPRATROPIUM BROMIDE
     Indication: MENTAL DISORDER
     Dosage: UNK
  2. BEROTEC [Suspect]
     Active Substance: FENOTEROL HYDROBROMIDE
     Indication: MENTAL DISORDER
     Dosage: UNK
  3. NUCALA [Suspect]
     Active Substance: MEPOLIZUMAB
     Indication: ASTHMA
     Dosage: 100 MG, UNK
     Dates: start: 20190919
  4. NUCALA [Suspect]
     Active Substance: MEPOLIZUMAB
     Indication: ASTHMA
     Dosage: 100 MG
     Dates: start: 20190919

REACTIONS (23)
  - Anaphylactic shock [Recovered/Resolved]
  - Oxygen saturation decreased [Unknown]
  - Product use in unapproved indication [Unknown]
  - Asthma [Recovered/Resolved]
  - Inappropriate schedule of product administration [Unknown]
  - Asthmatic crisis [Unknown]
  - Headache [Unknown]
  - Chikungunya virus infection [Recovered/Resolved]
  - Pruritus [Recovered/Resolved]
  - Arthralgia [Not Recovered/Not Resolved]
  - Product dose omission issue [Unknown]
  - Social problem [Unknown]
  - Dyspnoea [Recovered/Resolved]
  - Zika virus infection [Recovered/Resolved]
  - Spirometry abnormal [Unknown]
  - Pyrexia [Recovered/Resolved]
  - Coronavirus infection [Unknown]
  - Lung disorder [Unknown]
  - Patient isolation [Unknown]
  - Pneumonia [Unknown]
  - Gait disturbance [Unknown]
  - Malaise [Recovered/Resolved]
  - Dengue fever [Recovered/Resolved]

NARRATIVE: CASE EVENT DATE: 2021
